FAERS Safety Report 9894310 (Version 1)
Quarter: 2014Q1

REPORT INFORMATION
  Report Type: Spontaneous
  Country: US (occurrence: US)
  Receive Date: 20140213
  Receipt Date: 20140213
  Transmission Date: 20141002
  Serious: No
  Sender: FDA-Public Use
  Company Number: US-PFIZER INC-2014039760

PATIENT
  Sex: Female

DRUGS (6)
  1. ARTHROTEC [Suspect]
  2. CELEBREX [Suspect]
     Indication: ARTHRITIS
  3. CODEINE [Suspect]
  4. CYMBALTA [Suspect]
  5. TRAMADOL [Suspect]
  6. VICODIN [Suspect]

REACTIONS (1)
  - Drug hypersensitivity [Unknown]
